FAERS Safety Report 14435921 (Version 1)
Quarter: 2018Q1

REPORT INFORMATION
  Report Type: Spontaneous
  Country: US (occurrence: US)
  Receive Date: 20180125
  Receipt Date: 20180125
  Transmission Date: 20180509
  Serious: No
  Sender: FDA-Public Use
  Company Number: US-UNITED THERAPEUTICS-UNT-2017-009984

PATIENT
  Sex: Female
  Weight: 51.25 kg

DRUGS (3)
  1. ADEMPAS [Concomitant]
     Active Substance: RIOCIGUAT
     Indication: PRODUCT USED FOR UNKNOWN INDICATION
  2. TYVASO [Suspect]
     Active Substance: TREPROSTINIL
     Indication: PULMONARY ARTERIAL HYPERTENSION
     Dosage: 18 - 54 MICROGRAMS, QID
     Dates: start: 20161110
  3. OPSUMIT [Concomitant]
     Active Substance: MACITENTAN
     Indication: PRODUCT USED FOR UNKNOWN INDICATION

REACTIONS (8)
  - Off label use [Unknown]
  - Oxygen saturation decreased [Unknown]
  - Feeling abnormal [Unknown]
  - Chest pain [Unknown]
  - Nausea [Unknown]
  - Vomiting [Unknown]
  - Malaise [Unknown]
  - Dyspnoea [Unknown]
